FAERS Safety Report 22737018 (Version 3)
Quarter: 2023Q4

REPORT INFORMATION
  Report Type: Spontaneous
  Country: US (occurrence: US)
  Receive Date: 20230721
  Receipt Date: 20231214
  Transmission Date: 20240109
  Serious: Yes (Hospitalization, Other)
  Sender: FDA-Public Use
  Company Number: US-PFIZER INC-PV202300102420

PATIENT
  Age: 75 Year
  Sex: Male
  Weight: 81.65 kg

DRUGS (11)
  1. VYNDAMAX [Suspect]
     Active Substance: TAFAMIDIS
     Indication: Cardiac amyloidosis
     Dosage: 61 MG, 1X/DAY WITH WATER
     Route: 048
     Dates: start: 202212
  2. VYNDAMAX [Suspect]
     Active Substance: TAFAMIDIS
     Indication: Cardiac failure
     Dosage: 61 MG, 1X/DAY
     Route: 048
     Dates: start: 202301
  3. JARDIANCE [Concomitant]
     Active Substance: EMPAGLIFLOZIN
     Indication: Cardiac disorder
     Dosage: UNK
     Dates: start: 202301
  4. ESCITALOPRAM OXALATE [Concomitant]
     Active Substance: ESCITALOPRAM OXALATE
     Indication: Depression
     Dosage: 10 MG, DAILY
     Dates: start: 2022
  5. POTASSIUM CHLORIDE [Concomitant]
     Active Substance: POTASSIUM CHLORIDE
     Indication: Hypokalaemic syndrome
     Dosage: 40 MEQ, 2X/DAY (2 TAB TWICE A DAY TO EQUAL 40MEQ TWICE A DAY/10MEQ 4 TABS TWICE A DAY)
     Dates: start: 202305
  6. TORSEMIDE [Concomitant]
     Active Substance: TORSEMIDE
     Indication: Oedema
     Dosage: 80 MG, 2X/DAY
     Dates: start: 2022
  7. SPIRONOLACTONE [Concomitant]
     Active Substance: SPIRONOLACTONE
     Indication: Oedema
     Dosage: 12.5 MG, 2X/DAY
     Dates: start: 2022
  8. LEVOTHYROXINE [Concomitant]
     Active Substance: LEVOTHYROXINE
     Indication: Thyroid disorder
     Dosage: 50 UG, DAILY
     Dates: start: 2022
  9. FAMOTIDINE [Concomitant]
     Active Substance: FAMOTIDINE
     Indication: Gastric ulcer
     Dosage: 40 MG, DAILY
  10. TRAZODONE HCL [Concomitant]
     Active Substance: TRAZODONE HYDROCHLORIDE
     Indication: Sleep disorder
     Dosage: 50 MG, DAILY
  11. WARFARIN SODIUM [Concomitant]
     Active Substance: WARFARIN SODIUM
     Indication: Coagulopathy
     Dosage: 2.5 MG, DAILY

REACTIONS (8)
  - Ascites [Unknown]
  - Hepatic failure [Unknown]
  - Blood electrolytes abnormal [Unknown]
  - Fall [Unknown]
  - Lymphoedema [Unknown]
  - Sepsis [Unknown]
  - Asthenia [Unknown]
  - Blood potassium decreased [Unknown]
